APPROVED DRUG PRODUCT: HYDROMORPHONE HYDROCHLORIDE
Active Ingredient: HYDROMORPHONE HYDROCHLORIDE
Strength: 4MG
Dosage Form/Route: TABLET;ORAL
Application: A076855 | Product #003 | TE Code: AB
Applicant: SPECGX LLC
Approved: Sep 19, 2007 | RLD: No | RS: No | Type: RX